FAERS Safety Report 11786387 (Version 2)
Quarter: 2015Q4

REPORT INFORMATION
  Report Type: Spontaneous
  Country: BR (occurrence: BR)
  Receive Date: 20151130
  Receipt Date: 20151215
  Transmission Date: 20160305
  Serious: Yes (Other)
  Sender: FDA-Public Use
  Company Number: BR-VALIDUS PHARMACEUTICALS LLC-BR-2015VAL000782

PATIENT

DRUGS (2)
  1. PARLODEL [Suspect]
     Active Substance: BROMOCRIPTINE MESYLATE
     Indication: BREAST NEOPLASM
     Dosage: 2.5 MG, QD
     Route: 048
  2. ZYLORIC [Concomitant]
     Active Substance: ALLOPURINOL
     Indication: PRODUCT USED FOR UNKNOWN INDICATION
     Dosage: UNK
     Dates: start: 201503

REACTIONS (7)
  - Anuria [Recovering/Resolving]
  - Prostatic disorder [Recovering/Resolving]
  - Bladder neoplasm [Recovering/Resolving]
  - Hypertension [Recovering/Resolving]
  - Blood prolactin abnormal [Recovered/Resolved]
  - Blood cholesterol increased [Recovering/Resolving]
  - Product use issue [Unknown]

NARRATIVE: CASE EVENT DATE: 201503
